FAERS Safety Report 7588462-2 (Version None)
Quarter: 2011Q2

REPORT INFORMATION
  Report Type: 
  Country: None (occurrence: None)
  Receive Date: 20110603
  Receipt Date: 20110413
  Transmission Date: 20111010
  Serious: No
  Sender: FDA-Public Use
  Company Number: 2011SP016829

PATIENT
  Age: 45 Year
  Sex: Female

DRUGS (4)
  1. LOVASTATIN CT [Concomitant]
  2. SAPHRIS [Suspect]
     Indication: BIPOLAR DISORDER
     Dosage: 5 MG; QD; PO
     Route: 048
     Dates: start: 20110412, end: 20110413
  3. AMITRIPTYLINE HCL [Concomitant]
  4. PROAIR HFA [Concomitant]

REACTIONS (3)
  - HYPOAESTHESIA ORAL [None]
  - INCORRECT ROUTE OF DRUG ADMINISTRATION [None]
  - UNDERDOSE [None]
